FAERS Safety Report 10494989 (Version 2)
Quarter: 2015Q1

REPORT INFORMATION
  Report Type: Spontaneous
  Country: CA (occurrence: CA)
  Receive Date: 20141003
  Receipt Date: 20150108
  Transmission Date: 20150720
  Serious: Yes (Death, Hospitalization, Other)
  Sender: FDA-Public Use
  Company Number: CA-SA-2014SA131781

PATIENT
  Age: 70 Year
  Sex: Male

DRUGS (3)
  1. ELIQUIS [Suspect]
     Active Substance: APIXABAN
     Indication: ATRIAL FIBRILLATION
     Route: 065
  2. MULTAQ [Suspect]
     Active Substance: DRONEDARONE
     Route: 065
  3. ELIQUIS [Suspect]
     Active Substance: APIXABAN
     Indication: CEREBROVASCULAR ACCIDENT PROPHYLAXIS
     Route: 065

REACTIONS (5)
  - International normalised ratio increased [Fatal]
  - Haematoma [Fatal]
  - Liver function test abnormal [Unknown]
  - Organ failure [Fatal]
  - Pulmonary sepsis [Fatal]

NARRATIVE: CASE EVENT DATE: 2013
